FAERS Safety Report 17158068 (Version 1)
Quarter: 2019Q4

REPORT INFORMATION
  Report Type: Report from Study
  Country: US (occurrence: US)
  Receive Date: 20191216
  Receipt Date: 20191216
  Transmission Date: 20200122
  Serious: Yes (Other)
  Sender: FDA-Public Use
  Company Number: US-ELI_LILLY_AND_COMPANY-US201912002249

PATIENT
  Sex: Female

DRUGS (1)
  1. TERIPARATIDE [Suspect]
     Active Substance: TERIPARATIDE
     Indication: OSTEOPENIA
     Dosage: UNK UNK, UNKNOWN
     Route: 065
     Dates: start: 201909

REACTIONS (7)
  - Lower limb fracture [Unknown]
  - Frustration tolerance decreased [Unknown]
  - Multiple fractures [Unknown]
  - Renal failure [Unknown]
  - Bone loss [Unknown]
  - Off label use [Unknown]
  - Renal disorder [Unknown]
